FAERS Safety Report 5692448-2 (Version None)
Quarter: 2008Q2

REPORT INFORMATION
  Report Type: 
  Country: None (occurrence: None)
  Receive Date: 20080402
  Receipt Date: 20070918
  Transmission Date: 20081010
  Serious: No
  Sender: FDA-Public Use
  Company Number: US-BAYER-US-2007-035159

PATIENT
  Age: 45 Year
  Sex: Female
  Weight: 73 kg

DRUGS (8)
  1. LEUKINE [Suspect]
     Route: 058
     Dates: start: 20070112, end: 20070312
  2. PERCOCET-5 [Concomitant]
     Route: 048
  3. IBUPROFEN [Concomitant]
     Dosage: UNIT DOSE: 800 MG
     Route: 048
  4. CYTOXAN [Concomitant]
     Route: 042
     Dates: start: 20070111
  5. VINCRISTINE [Concomitant]
     Route: 042
     Dates: start: 20070111
  6. DOXORUBICIN HCL [Concomitant]
     Route: 042
     Dates: start: 20070111
  7. ZOMETA [Concomitant]
     Route: 042
     Dates: start: 20070111
  8. RITUXAN [Concomitant]
     Route: 042
     Dates: start: 20070111

REACTIONS (3)
  - INJECTION SITE ERYTHEMA [None]
  - INJECTION SITE PAIN [None]
  - INJECTION SITE SWELLING [None]
